FAERS Safety Report 23493564 (Version 1)
Quarter: 2024Q1

REPORT INFORMATION
  Report Type: Report from Study
  Country: US (occurrence: US)
  Receive Date: 20240207
  Receipt Date: 20240207
  Transmission Date: 20240409
  Serious: Yes (Hospitalization, Other)
  Sender: FDA-Public Use
  Company Number: US-SUN PHARMACEUTICAL INDUSTRIES LTD-2024R1-429810

PATIENT
  Age: 15 Year
  Sex: Female

DRUGS (8)
  1. ARIPIPRAZOLE [Suspect]
     Active Substance: ARIPIPRAZOLE
     Indication: Bipolar disorder
     Dosage: UNK (30 MG)
     Route: 048
  2. ARIPIPRAZOLE [Suspect]
     Active Substance: ARIPIPRAZOLE
     Indication: Intermittent explosive disorder
     Dosage: UNK (10 MG)
     Route: 048
  3. ARIPIPRAZOLE [Suspect]
     Active Substance: ARIPIPRAZOLE
     Indication: Generalised anxiety disorder
  4. ARIPIPRAZOLE [Suspect]
     Active Substance: ARIPIPRAZOLE
     Indication: Social anxiety disorder
  5. CLONIDINE [Suspect]
     Active Substance: CLONIDINE
     Indication: Bipolar disorder
     Dosage: 0.2 MILLIGRAM, DAILY
     Route: 065
  6. CLONIDINE [Suspect]
     Active Substance: CLONIDINE
     Indication: Intermittent explosive disorder
  7. CLONIDINE [Suspect]
     Active Substance: CLONIDINE
     Indication: Generalised anxiety disorder
  8. CLONIDINE [Suspect]
     Active Substance: CLONIDINE
     Indication: Social anxiety disorder

REACTIONS (3)
  - Treatment noncompliance [Unknown]
  - Condition aggravated [Unknown]
  - Drug screen positive [Unknown]
